FAERS Safety Report 7278040-7 (Version None)
Quarter: 2011Q1

REPORT INFORMATION
  Report Type: 
  Country: None (occurrence: None)
  Receive Date: 20110207
  Receipt Date: 20110126
  Transmission Date: 20110831
  Serious: Yes (Hospitalization)
  Sender: FDA-Public Use
  Company Number: US-BAYER-2010-008996

PATIENT
  Sex: Female

DRUGS (34)
  1. UNCODEABLE ^UNCLASSIFIABLE^ [Concomitant]
     Dosage: UNK
     Dates: start: 20101205
  2. LANTUS [Concomitant]
     Dosage: AT BEDTIME
     Dates: start: 20081215
  3. MULTI-VITAMIN [Concomitant]
     Dosage: UNK UNK, QD
     Dates: start: 20080209
  4. JANUVIA [Concomitant]
     Dosage: UNK
     Dates: start: 20100223
  5. JANUVIA [Concomitant]
     Dosage: DAILY DOSE 50 MG
     Dates: start: 20100902
  6. MORPHINE SULFATE [Concomitant]
     Dosage: UNK
     Dates: start: 20110107
  7. POTASSIUM CHLORIDE [Concomitant]
     Dosage: UNK
     Dates: start: 20101230
  8. ASPIRIN [Concomitant]
     Dosage: DAILY DOSE 325 MG
     Dates: start: 20080902
  9. NEXAVAR [Suspect]
     Indication: HEPATIC NEOPLASM MALIGNANT
     Dosage: 200 MG, BID
     Route: 048
     Dates: start: 20080801
  10. DRONABINOL [Concomitant]
     Dosage: UNK
     Dates: start: 20110113
  11. METRONIDAZOLE [Concomitant]
     Dosage: UNK
     Dates: start: 20101025
  12. METOPROLOL TARTRATE [Concomitant]
     Dosage: UNK
     Dates: start: 20100726
  13. TRAMADOL HCL [Concomitant]
     Dosage: UNK
     Dates: start: 20100812
  14. LEVAQUIN [Concomitant]
     Dosage: UNK
     Dates: start: 20101025
  15. MARINOL [Concomitant]
     Dosage: UNK UNK, BID
     Dates: start: 20100809
  16. METOPROLOL [Concomitant]
     Dosage: UNK
     Dates: start: 20090527
  17. DRONABINOL [Concomitant]
     Dosage: UNK
     Dates: start: 20100901
  18. HYDROCODONE BITARTRATE AND ACETAMINOPHEN [Concomitant]
     Dosage: UNK
     Dates: start: 20101230
  19. MAGNESIUM OXIDE [Concomitant]
     Dosage: UNK
     Dates: start: 20101230, end: 20110119
  20. VITAMIN D [Concomitant]
     Dosage: UNK
     Dates: start: 20101206
  21. ONDANSETRON [Concomitant]
     Dosage: UNK
     Dates: start: 20101030
  22. HYDROCHLOROTHIAZIDE [Concomitant]
     Dosage: DAILY DOSE 25 MG
     Dates: start: 20090115
  23. DIOVAN [Concomitant]
     Dosage: DAILY DOSE 160 MG
     Dates: start: 20080209
  24. NIASPAN [Concomitant]
     Dosage: DAILY DOSE 1000 MG
     Dates: start: 20080902
  25. NEXAVAR [Suspect]
     Dosage: 400 MG, BID
     Route: 048
     Dates: start: 20080903
  26. ALLOPURINOL [Concomitant]
     Dosage: UNK
     Dates: start: 20100417
  27. DIPHENOXYLATE HCL AND ATROPINE SULFATE [Concomitant]
     Dosage: UNK
     Dates: start: 20101111
  28. AMLODIPINE BESYLATE [Concomitant]
     Dosage: UNK
     Dates: start: 20101025, end: 20101209
  29. ALLOPURINOL [Concomitant]
     Dosage: UNK
     Dates: start: 20090527
  30. LOMOTIL [DIPHENOXYLATE HYDROCHLORIDE] [Concomitant]
     Dosage: UNK
     Dates: start: 20091111
  31. CHOLESTYRAMINE [Concomitant]
     Dosage: UNK
     Dates: start: 20110114
  32. TOPROL-XL [Concomitant]
     Dosage: DAILY DOSE 50 MG
     Dates: start: 20080902
  33. TRIAMTERENE AND HYDROCHLOROTHIAZIDE [Concomitant]
     Dosage: UNK
     Dates: start: 20080902, end: 20090115
  34. OXYCODONE HCL [Concomitant]
     Dosage: UNK
     Dates: start: 20101108

REACTIONS (4)
  - FATIGUE [None]
  - DIARRHOEA [None]
  - NAUSEA [None]
  - ELECTROLYTE IMBALANCE [None]
